FAERS Safety Report 14672159 (Version 3)
Quarter: 2018Q4

REPORT INFORMATION
  Report Type: Spontaneous
  Country: US (occurrence: US)
  Receive Date: 20180323
  Receipt Date: 20181016
  Transmission Date: 20190204
  Serious: Yes (Death, Other)
  Sender: FDA-Public Use
  Company Number: US-ASTRAZENECA-2018SE33611

PATIENT
  Age: 30491 Day
  Sex: Male
  Weight: 75.8 kg

DRUGS (53)
  1. AMOXICILLIN. [Concomitant]
     Active Substance: AMOXICILLIN
     Route: 065
     Dates: start: 20080407
  2. ALKA-SELTZER [Concomitant]
     Active Substance: ANHYDROUS CITRIC ACID\ASPIRIN\SODIUM BICARBONATE
     Dates: start: 1970, end: 20151014
  3. FLUTICASONE. [Concomitant]
     Active Substance: FLUTICASONE
     Route: 065
  4. FINASTERIDE. [Concomitant]
     Active Substance: FINASTERIDE
     Route: 048
  5. IPRATROPIUM [Concomitant]
     Active Substance: IPRATROPIUM
     Dosage: 0.03%
     Route: 045
     Dates: start: 20060501
  6. PREVIDENT [Concomitant]
     Active Substance: SODIUM FLUORIDE
     Dates: start: 20080625
  7. NEXIUM [Suspect]
     Active Substance: ESOMEPRAZOLE MAGNESIUM
     Indication: GASTROOESOPHAGEAL REFLUX DISEASE
     Route: 048
  8. PROTONIX [Suspect]
     Active Substance: PANTOPRAZOLE SODIUM
     Indication: GASTROOESOPHAGEAL REFLUX DISEASE
     Route: 048
     Dates: start: 20021115, end: 200712
  9. PROTONIX [Suspect]
     Active Substance: PANTOPRAZOLE SODIUM
     Indication: GASTROOESOPHAGEAL REFLUX DISEASE
     Route: 065
     Dates: start: 200211, end: 201105
  10. FUROSEMIDE. [Concomitant]
     Active Substance: FUROSEMIDE
     Dosage: TAKE ONE TABLET BY MOUTH EVERY DAY
     Route: 048
     Dates: start: 20040101
  11. PENICILLIN NOS [Concomitant]
     Active Substance: PENICILLIN
     Dates: start: 20100119, end: 20100218
  12. IBUPROFEN. [Concomitant]
     Active Substance: IBUPROFEN
     Indication: PAIN
     Route: 065
     Dates: start: 201501, end: 201510
  13. CARVEDILOL. [Concomitant]
     Active Substance: CARVEDILOL
  14. CAPTOPRIL. [Concomitant]
     Active Substance: CAPTOPRIL
     Route: 048
  15. BIAXIN [Concomitant]
     Active Substance: CLARITHROMYCIN
     Dosage: TAKE ONE TABLET BY MOUTH TWICE DAILY FOR 7 DAYS
     Route: 065
  16. PROCHLORPERAZINE. [Concomitant]
     Active Substance: PROCHLORPERAZINE
     Route: 048
     Dates: start: 20030805
  17. NEXIUM [Suspect]
     Active Substance: ESOMEPRAZOLE MAGNESIUM
     Indication: GASTROOESOPHAGEAL REFLUX DISEASE
     Route: 048
     Dates: start: 201104, end: 201307
  18. METOPROLOL. [Concomitant]
     Active Substance: METOPROLOL
  19. CITALOPRAM [Concomitant]
     Active Substance: CITALOPRAM HYDROBROMIDE
     Dosage: TAKE ONE TABLET BY MOUTH TWICE DAILY
     Route: 048
     Dates: start: 20070815
  20. ALLEGRA [Concomitant]
     Active Substance: FEXOFENADINE HYDROCHLORIDE
     Route: 048
     Dates: start: 20030303
  21. ZOLPIDEM [Concomitant]
     Active Substance: ZOLPIDEM\ZOLPIDEM TARTRATE
     Dosage: AT BEDTIME
     Route: 048
     Dates: start: 20070515
  22. OXYCODONE [Concomitant]
     Active Substance: OXYCODONE
     Route: 048
     Dates: start: 20030916
  23. SPIRONOLACTONE. [Concomitant]
     Active Substance: SPIRONOLACTONE
     Route: 065
  24. TERAZOSIN [Concomitant]
     Active Substance: TERAZOSIN\TERAZOSIN HYDROCHLORIDE
     Dosage: AT BEDTIME
     Route: 048
     Dates: start: 20070226
  25. EFFEXOR [Concomitant]
     Active Substance: VENLAFAXINE HYDROCHLORIDE
     Dosage: FOR TWO WEEKS
     Route: 048
     Dates: start: 20071208
  26. NEXIUM [Suspect]
     Active Substance: ESOMEPRAZOLE MAGNESIUM
     Indication: GASTROOESOPHAGEAL REFLUX DISEASE
     Route: 048
     Dates: start: 20130124
  27. NEXIUM [Suspect]
     Active Substance: ESOMEPRAZOLE MAGNESIUM
     Indication: GASTROOESOPHAGEAL REFLUX DISEASE
     Dosage: TAKE ONE TABLET BY MOUTH EVERY DAY
     Route: 048
     Dates: start: 20110415
  28. NEXIUM 24HR [Suspect]
     Active Substance: ESOMEPRAZOLE MAGNESIUM
     Route: 048
  29. PROTONIX [Suspect]
     Active Substance: PANTOPRAZOLE SODIUM
     Indication: GASTROOESOPHAGEAL REFLUX DISEASE
     Dosage: GENERIC
     Route: 065
     Dates: start: 200801, end: 200807
  30. PROTONIX [Suspect]
     Active Substance: PANTOPRAZOLE SODIUM
     Indication: GASTROOESOPHAGEAL REFLUX DISEASE
     Dosage: GENERIC
     Route: 048
     Dates: start: 200801, end: 200807
  31. XOPENEX [Concomitant]
     Active Substance: LEVALBUTEROL HYDROCHLORIDE
     Route: 065
  32. XARELTO [Concomitant]
     Active Substance: RIVAROXABAN
     Route: 048
  33. WARFARIN [Concomitant]
     Active Substance: WARFARIN
     Dosage: TAKE 1 TABLET BY MOUTH
     Route: 048
     Dates: start: 20040119
  34. PROTONIX [Suspect]
     Active Substance: PANTOPRAZOLE SODIUM
     Indication: GASTROOESOPHAGEAL REFLUX DISEASE
     Dosage: TAKE ONE TABLET BY MOUTH EVERY DAY
     Route: 065
     Dates: start: 20021115
  35. ROLAIDS [Concomitant]
     Active Substance: CALCIUM CARBONATE\MAGNESIUM HYDROXIDE
     Dates: start: 1970, end: 20151014
  36. SYNTHROID [Concomitant]
     Active Substance: LEVOTHYROXINE SODIUM
     Route: 065
  37. LASIX [Concomitant]
     Active Substance: FUROSEMIDE
     Route: 048
  38. DIOVAN [Concomitant]
     Active Substance: VALSARTAN
     Route: 048
     Dates: start: 20021212
  39. LIPITOR [Concomitant]
     Active Substance: ATORVASTATIN CALCIUM
     Route: 065
     Dates: start: 20101201, end: 20110801
  40. CARVEDILOL. [Concomitant]
     Active Substance: CARVEDILOL
  41. BUDESONIDE. [Concomitant]
     Active Substance: BUDESONIDE
     Dosage: 32MCG/INH
     Route: 045
  42. MONTELUKAST [Concomitant]
     Active Substance: MONTELUKAST SODIUM
     Route: 065
  43. SOTALOL. [Concomitant]
     Active Substance: SOTALOL
     Dosage: TAKE ONE-HALF TABLET BY MOUTH TWICE DAI LY
     Route: 048
     Dates: start: 20050504
  44. DEXAMETHASON [Concomitant]
     Active Substance: DEXAMETHASONE
     Route: 065
     Dates: start: 20030806
  45. PRILOSEC OTC [Suspect]
     Active Substance: OMEPRAZOLE MAGNESIUM
     Indication: GASTROOESOPHAGEAL REFLUX DISEASE
     Dosage: ONCE DAILY
     Route: 048
  46. ATORVASTATIN [Concomitant]
     Active Substance: ATORVASTATIN
     Route: 065
     Dates: start: 20120125, end: 20150501
  47. FLOMAX [Concomitant]
     Active Substance: TAMSULOSIN HYDROCHLORIDE
  48. LISINOPRIL. [Concomitant]
     Active Substance: LISINOPRIL
     Dosage: 5.0MG UNKNOWN
     Route: 048
  49. COREG [Concomitant]
     Active Substance: CARVEDILOL
     Route: 048
  50. ZOLPIDEM [Concomitant]
     Active Substance: ZOLPIDEM\ZOLPIDEM TARTRATE
     Dosage: TAKE ONE TABLET BY MOUTH AT BEDTIME FOR SLEEP
     Route: 048
     Dates: start: 20070516
  51. HYDROCO/ACETAMIIN [Concomitant]
     Dosage: 7.5-500 MG
     Route: 048
     Dates: start: 20031231
  52. ALTACE [Concomitant]
     Active Substance: RAMIPRIL
     Route: 048
     Dates: start: 20030807
  53. NYSTATIN. [Concomitant]
     Active Substance: NYSTATIN
     Route: 048
     Dates: start: 20030930

REACTIONS (3)
  - Congestive cardiomyopathy [Fatal]
  - Chronic kidney disease [Recovered/Resolved]
  - Acute left ventricular failure [Fatal]

NARRATIVE: CASE EVENT DATE: 20150612
